FAERS Safety Report 8360700-8 (Version None)
Quarter: 2012Q2

REPORT INFORMATION
  Report Type: 
  Country: None (occurrence: None)
  Receive Date: 20120515
  Receipt Date: 20120511
  Transmission Date: 20120825
  Serious: Yes (Death, Hospitalization)
  Sender: FDA-Public Use
  Company Number: US-ACTELION-A-NJ2012-61838

PATIENT

DRUGS (3)
  1. REVATIO [Concomitant]
  2. VENTAVIS [Suspect]
     Indication: PULMONARY ARTERIAL HYPERTENSION
     Dosage: 5 ?G, UNK
     Route: 055
     Dates: end: 20120504
  3. VENTAVIS [Suspect]
     Dosage: 2.5 ?G, UNK
     Route: 055
     Dates: start: 20111215

REACTIONS (5)
  - HYPOXIA [None]
  - RIGHT VENTRICULAR FAILURE [None]
  - FLUID RETENTION [None]
  - DEATH [None]
  - CONDITION AGGRAVATED [None]
